FAERS Safety Report 7654071-X (Version None)
Quarter: 2011Q3

REPORT INFORMATION
  Report Type: 
  Country: None (occurrence: None)
  Receive Date: 20110803
  Receipt Date: 20110721
  Transmission Date: 20111222
  Serious: Yes (Other)
  Sender: FDA-Public Use
  Company Number: US-BAYER-2011-063474

PATIENT
  Sex: Female
  Weight: 272 kg

DRUGS (1)
  1. ALEVE (CAPLET) [Suspect]
     Indication: TOOTHACHE
     Dosage: 10 DF, ONCE
     Route: 048
     Dates: start: 20110719

REACTIONS (2)
  - DYSPNOEA [None]
  - TREMOR [None]
